FAERS Safety Report 22308626 (Version 1)
Quarter: 2023Q2

REPORT INFORMATION
  Report Type: Spontaneous
  Country: US (occurrence: None)
  Receive Date: 20230511
  Receipt Date: 20230511
  Transmission Date: 20230722
  Serious: No
  Sender: FDA-Public Use
  Company Number: US-ROCHE-3268860

PATIENT
  Sex: Female
  Weight: 56.296 kg

DRUGS (7)
  1. OCREVUS [Suspect]
     Active Substance: OCRELIZUMAB
     Indication: Secondary progressive multiple sclerosis
     Route: 042
     Dates: start: 2016
  2. ROGAINE [Concomitant]
     Active Substance: MINOXIDIL
     Indication: Alopecia
  3. DULOXETINE [Concomitant]
     Active Substance: DULOXETINE
     Indication: Pain
  4. BACLOFEN [Concomitant]
     Active Substance: BACLOFEN
     Route: 048
  5. GABAPENTIN [Concomitant]
     Active Substance: GABAPENTIN
     Route: 048
  6. VITAMIN B12 [Concomitant]
     Active Substance: CYANOCOBALAMIN
  7. DALFAMPRIDINE [Concomitant]
     Active Substance: DALFAMPRIDINE

REACTIONS (1)
  - Alopecia [Not Recovered/Not Resolved]
